FAERS Safety Report 4555217-2 (Version None)
Quarter: 2004Q4

REPORT INFORMATION
  Report Type: 
  Country: None (occurrence: None)
  Receive Date: 20041217
  Receipt Date: 20040827
  Transmission Date: 20050328
  Serious: No
  Sender: FDA-Public Use
  Company Number: 2004-BP-07450BP

PATIENT
  Age: 56 Year
  Sex: Female

DRUGS (2)
  1. SPIRIVA [Suspect]
     Indication: ASTHMA
     Dosage: (18 MCG), IH
     Route: 055
     Dates: start: 20040801, end: 20040801
  2. STEROIDS [Concomitant]

REACTIONS (1)
  - HOARSENESS [None]
